FAERS Safety Report 8589938-1 (Version None)
Quarter: 2012Q3

REPORT INFORMATION
  Report Type: 
  Country: None (occurrence: None)
  Receive Date: 20120813
  Receipt Date: 19920526
  Transmission Date: 20120928
  Serious: Yes (Hospitalization, Other)
  Sender: FDA-Public Use
  Company Number: US-ROCHE-1098886

PATIENT
  Age: 39 Year
  Sex: Male

DRUGS (4)
  1. MORPHINE [Concomitant]
  2. HEPARIN IV (BOLUS) [Concomitant]
  3. LOPRESSOR [Concomitant]
  4. ACTIVASE [Suspect]
     Indication: ACUTE MYOCARDIAL INFARCTION
     Dosage: ACCELERATED REGIMEN 100 MG OVER 9 MINS

REACTIONS (3)
  - HEADACHE [None]
  - ELECTROCARDIOGRAM ST SEGMENT DEPRESSION [None]
  - BRONCHITIS [None]
